FAERS Safety Report 21885590 (Version 2)
Quarter: 2023Q1

REPORT INFORMATION
  Report Type: Spontaneous
  Country: PL (occurrence: PL)
  Receive Date: 20230119
  Receipt Date: 20230206
  Transmission Date: 20230418
  Serious: Yes (Other)
  Sender: FDA-Public Use
  Company Number: PL-ALLERGAN-2301258US

PATIENT
  Sex: Male

DRUGS (4)
  1. UNSPECIFIED INGREDIENT [Suspect]
     Active Substance: UNSPECIFIED INGREDIENT
     Indication: Uveitis
  2. PREDNISONE [Suspect]
     Active Substance: PREDNISONE
     Indication: Uveitis
     Dosage: MAINTENANCE DOSE 10 MG
     Route: 048
  3. DEXAMETHASONE [Suspect]
     Active Substance: DEXAMETHASONE
     Indication: Uveitis
     Dosage: INITIAL DOSE OF 6 MG (IN DECREASING DOSES)
     Route: 042
     Dates: start: 2010
  4. TROPICAMIDE [Suspect]
     Active Substance: TROPICAMIDE
     Indication: Uveitis

REACTIONS (2)
  - Herpes ophthalmic [Unknown]
  - Cataract [Unknown]

NARRATIVE: CASE EVENT DATE: 20151001
